FAERS Safety Report 4504217-7 (Version None)
Quarter: 2004Q4

REPORT INFORMATION
  Report Type: 
  Country: None (occurrence: None)
  Receive Date: 20041116
  Receipt Date: 20041116
  Transmission Date: 20050328
  Serious: Yes (Life-Threatening)
  Sender: FDA-Public Use
  Company Number: None

PATIENT
  Age: 75 Year
  Sex: Male
  Weight: 63.05 kg

DRUGS (12)
  1. DIGOXIN [Suspect]
     Indication: ATRIAL FIBRILLATION
     Dosage: 0.25 MG DAILY
     Dates: start: 20040301, end: 20040713
  2. SOTALOL HCL [Suspect]
     Indication: ATRIAL FIBRILLATION
     Dosage: 40 MG Q AM
     Dates: start: 20040301, end: 20040723
  3. COUMADIN [Concomitant]
  4. MORPHINE SO4 [Concomitant]
  5. LANOXIN [Concomitant]
  6. SOTALOL HCL [Concomitant]
  7. ISOSORBIDE ??TRATE [Concomitant]
  8. HYDRALAZINE HCL [Concomitant]
  9. FUROSEMIDE [Concomitant]
  10. SALSALATE [Concomitant]
  11. GAUZE PAD 4IN X 4IN STERILE [Concomitant]
  12. POUCH, UROSTOMY, PRE [Concomitant]

REACTIONS (1)
  - BRADYCARDIA [None]
